FAERS Safety Report 10026411 (Version 1)
Quarter: 2014Q1

REPORT INFORMATION
  Report Type: Report from Study
  Country: US (occurrence: US)
  Receive Date: 20140321
  Receipt Date: 20140321
  Transmission Date: 20141002
  Serious: Yes (Life-Threatening, Hospitalization, Other)
  Sender: FDA-Public Use
  Company Number: US-ROCHE-1366225

PATIENT
  Sex: Female

DRUGS (1)
  1. RITUXAN [Suspect]
     Indication: RHEUMATOID ARTHRITIS
     Dosage: START DATE:SEVERAL YEARS AGO AND STOP DATE: WITHIN LAST 3 MONTHS
     Route: 042

REACTIONS (3)
  - Coronary artery bypass [Unknown]
  - Dyspepsia [Unknown]
  - Blood glucose increased [Unknown]
